FAERS Safety Report 17913947 (Version 5)
Quarter: 2020Q4

REPORT INFORMATION
  Report Type: Report from Study
  Country: US (occurrence: US)
  Receive Date: 20200619
  Receipt Date: 20201029
  Transmission Date: 20210113
  Serious: No
  Sender: FDA-Public Use
  Company Number: NVSC2020US171369

PATIENT
  Sex: Female

DRUGS (3)
  1. PIQRAY [Suspect]
     Active Substance: ALPELISIB
     Indication: PRODUCT USED FOR UNKNOWN INDICATION
     Dosage: UNK
     Route: 048
  2. PIQRAY [Suspect]
     Active Substance: ALPELISIB
     Dosage: UNK
     Route: 048
  3. PIQRAY [Suspect]
     Active Substance: ALPELISIB
     Dosage: 200 MG
     Route: 065

REACTIONS (5)
  - Blood glucose increased [Unknown]
  - Product dose omission issue [Unknown]
  - Dizziness [Unknown]
  - Blood glucose increased [Recovered/Resolved with Sequelae]
  - Blood glucose decreased [Unknown]
